FAERS Safety Report 12277062 (Version 6)
Quarter: 2016Q4

REPORT INFORMATION
  Report Type: Report from Study
  Country: JP (occurrence: JP)
  Receive Date: 20160418
  Receipt Date: 20161230
  Transmission Date: 20170207
  Serious: Yes (Hospitalization)
  Sender: FDA-Public Use
  Company Number: JP-JNJFOC-20160405163

PATIENT
  Age: 42 Year
  Sex: Female
  Weight: 63 kg

DRUGS (2)
  1. YONDELIS [Suspect]
     Active Substance: TRABECTEDIN
     Indication: LEIOMYOSARCOMA METASTATIC
     Dosage: CYCLE 1, 24-HOUR INFUSION
     Route: 041
     Dates: start: 20160223
  2. DEXAMETHASONE. [Concomitant]
     Active Substance: DEXAMETHASONE
     Route: 065
     Dates: start: 20160223

REACTIONS (9)
  - Platelet count decreased [Recovered/Resolved]
  - Hypoalbuminaemia [Not Recovered/Not Resolved]
  - White blood cell count decreased [Recovering/Resolving]
  - Neutrophil count decreased [Recovering/Resolving]
  - Decreased appetite [Recovering/Resolving]
  - Alanine aminotransferase increased [Recovered/Resolved]
  - Aspartate aminotransferase increased [Recovered/Resolved]
  - Blood alkaline phosphatase increased [Recovering/Resolving]
  - Anaemia [Recovering/Resolving]

NARRATIVE: CASE EVENT DATE: 20160224
